FAERS Safety Report 8507065-6 (Version None)
Quarter: 2012Q3

REPORT INFORMATION
  Report Type: 
  Country: None (occurrence: None)
  Receive Date: 20120712
  Receipt Date: 20120629
  Transmission Date: 20120928
  Serious: No
  Sender: FDA-Public Use
  Company Number: US-MUTUAL PHARMACEUTICAL COMPANY, INC.-CLCY20120090

PATIENT
  Sex: Male
  Weight: 93.07 kg

DRUGS (8)
  1. COLCRYS [Suspect]
     Indication: GOUT
     Route: 048
     Dates: start: 20111001, end: 20120126
  2. ULORIC [Suspect]
     Indication: GOUT
     Route: 048
     Dates: start: 20120319, end: 20120403
  3. ALLOPURINOL [Suspect]
     Route: 048
     Dates: end: 20111201
  4. ALLOPURINOL [Suspect]
     Route: 048
     Dates: start: 20111101
  5. COLCHICINE [Suspect]
     Indication: GOUT
     Route: 065
     Dates: start: 20010101, end: 20110101
  6. COLCRYS [Suspect]
     Route: 048
     Dates: start: 20120201, end: 20120520
  7. ALLOPURINOL [Suspect]
     Indication: GOUT
     Route: 048
     Dates: start: 20111001, end: 20111101
  8. ALLOPURINOL [Suspect]
     Indication: GOUT
     Route: 048
     Dates: end: 20111201

REACTIONS (8)
  - DRUG HYPERSENSITIVITY [None]
  - DIZZINESS [None]
  - URTICARIA [None]
  - OEDEMA PERIPHERAL [None]
  - ALOPECIA [None]
  - RASH [None]
  - PLATELET COUNT DECREASED [None]
  - SPLENECTOMY [None]
